FAERS Safety Report 12858512 (Version 3)
Quarter: 2017Q1

REPORT INFORMATION
  Report Type: Spontaneous
  Country: US (occurrence: US)
  Receive Date: 20161018
  Receipt Date: 20170112
  Transmission Date: 20170428
  Serious: Yes (Hospitalization)
  Sender: FDA-Public Use
  Company Number: US-PFIZER INC-2016477886

PATIENT
  Age: 75 Year
  Sex: Female
  Weight: 93 kg

DRUGS (4)
  1. COUMADIN [Concomitant]
     Active Substance: WARFARIN SODIUM
     Indication: THROMBOSIS
     Dosage: 2.5 MG, 1X/DAY; VARIES BASED ON HER BLOOD LEVELS
     Route: 048
  2. DOFETILIDE. [Suspect]
     Active Substance: DOFETILIDE
     Indication: ATRIAL FIBRILLATION
     Dosage: 0.5 MG, 2X/DAY
     Route: 048
     Dates: start: 201608
  3. DOFETILIDE. [Suspect]
     Active Substance: DOFETILIDE
     Dosage: UNK
  4. LOVENOX [Concomitant]
     Active Substance: ENOXAPARIN SODIUM
     Indication: COAGULOPATHY
     Dosage: 90 MG, 1X/DAY
     Route: 058
     Dates: start: 201609, end: 20161009

REACTIONS (7)
  - Drug ineffective [Recovered/Resolved]
  - Palpitations [Not Recovered/Not Resolved]
  - Malaise [Unknown]
  - Blood pressure fluctuation [Recovering/Resolving]
  - Drug intolerance [Recovering/Resolving]
  - Asthenia [Recovered/Resolved]
  - Dizziness [Unknown]

NARRATIVE: CASE EVENT DATE: 20160804
